FAERS Safety Report 15019300 (Version 1)
Quarter: 2018Q2

REPORT INFORMATION
  Report Type: Spontaneous
  Country: US (occurrence: US)
  Receive Date: 20180524
  Receipt Date: 20180524
  Transmission Date: 20180711
  Serious: No
  Sender: FDA-Public Use
  Company Number: None

PATIENT
  Age: 48 Year
  Sex: Male

DRUGS (1)
  1. GABAPENTIN. [Suspect]
     Active Substance: GABAPENTIN
     Route: 048
     Dates: start: 20180101, end: 20180305

REACTIONS (3)
  - Libido decreased [None]
  - Erectile dysfunction [None]
  - Sexual dysfunction [None]

NARRATIVE: CASE EVENT DATE: 20180305
